FAERS Safety Report 22233597 (Version 2)
Quarter: 2023Q2

REPORT INFORMATION
  Report Type: Report from Study
  Country: FR (occurrence: FR)
  Receive Date: 20230420
  Receipt Date: 20230501
  Transmission Date: 20230721
  Serious: Yes (Hospitalization)
  Sender: FDA-Public Use
  Company Number: FR-GILEAD-2023-0625082

PATIENT
  Sex: Male
  Weight: 67 kg

DRUGS (8)
  1. BICTEGRAVIR\EMTRICITABINE\TENOFOVIR ALAFENAMIDE [Suspect]
     Active Substance: BICTEGRAVIR\EMTRICITABINE\TENOFOVIR ALAFENAMIDE
     Indication: HIV infection
     Dosage: 1 DOSAGE FORM, QD
     Route: 048
     Dates: start: 20190525
  2. RISPERIDONE [Concomitant]
     Active Substance: RISPERIDONE
     Indication: HIV-associated neurocognitive disorder
     Dosage: UNK
     Dates: start: 20160212
  3. KARDEGIC [Concomitant]
     Active Substance: ASPIRIN DL-LYSINE
     Indication: Prophylaxis
     Dosage: UNK
     Dates: start: 20201120
  4. EZETIMIBE\ROSUVASTATIN [Concomitant]
     Active Substance: EZETIMIBE\ROSUVASTATIN
     Indication: Prophylaxis
     Dosage: UNK
     Dates: start: 20220422
  5. LERCANIDIPINE [Concomitant]
     Active Substance: LERCANIDIPINE
     Indication: Hypertension
     Dosage: UNK
     Dates: start: 20220422
  6. PIRIBEDIL [Concomitant]
     Active Substance: PIRIBEDIL
     Indication: Holmes tremor
     Dosage: UNK
     Dates: start: 201711
  7. PEVARYL [ECONAZOLE] [Concomitant]
     Indication: Intertrigo
     Dosage: UNK
     Dates: start: 20191115
  8. CHOLECALCIFEROL [Concomitant]
     Active Substance: CHOLECALCIFEROL
     Indication: Prophylaxis
     Dosage: UNK

REACTIONS (1)
  - Kaposi^s sarcoma [Not Recovered/Not Resolved]

NARRATIVE: CASE EVENT DATE: 20220601
